FAERS Safety Report 9466680 (Version 1)
Quarter: 2013Q3

REPORT INFORMATION
  Report Type: Spontaneous
  Country: US (occurrence: None)
  Receive Date: 20130816
  Receipt Date: 20130816
  Transmission Date: 20140515
  Serious: Yes (Other)
  Sender: FDA-Public Use
  Company Number: None

PATIENT
  Age: 49 Year
  Sex: Male

DRUGS (1)
  1. IMIQUIMOD 5% 2H1 [Suspect]

REACTIONS (7)
  - Skin irritation [None]
  - Pruritus genital [None]
  - Penile exfoliation [None]
  - Penile pain [None]
  - Penis disorder [None]
  - Scab [None]
  - Penile erythema [None]
